FAERS Safety Report 23886262 (Version 2)
Quarter: 2024Q3

REPORT INFORMATION
  Report Type: Spontaneous
  Country: US (occurrence: US)
  Receive Date: 20240522
  Receipt Date: 20240912
  Transmission Date: 20241017
  Serious: No
  Sender: CALLIDITAS THERAPEUTICS
  Company Number: US-Calliditas-2024CAL00755

PATIENT
  Age: 42 Year
  Sex: Female

DRUGS (1)
  1. TARPEYO [Suspect]
     Active Substance: BUDESONIDE
     Indication: IgA nephropathy
     Route: 048
     Dates: start: 20231130

REACTIONS (4)
  - Product dose omission issue [Unknown]
  - Weight increased [Not Recovered/Not Resolved]
  - Acne [Unknown]
  - Pruritus [Unknown]
